FAERS Safety Report 18135589 (Version 7)
Quarter: 2021Q1

REPORT INFORMATION
  Report Type: Report from Study
  Country: DE (occurrence: DE)
  Receive Date: 20200811
  Receipt Date: 20210305
  Transmission Date: 20210419
  Serious: Yes (Death, Life-Threatening)
  Sender: FDA-Public Use
  Company Number: DE-PFIZER INC-2020301446

PATIENT
  Age: 18 Year
  Sex: Male

DRUGS (16)
  1. VANCOMYCIN [Concomitant]
     Active Substance: VANCOMYCIN
     Indication: BACTERIAL INFECTION
     Dosage: 1 G (IN CONSULTATION)
     Route: 065
     Dates: start: 20200804, end: 20200821
  2. INOTUZUMAB OZOGAMICIN [Suspect]
     Active Substance: INOTUZUMAB OZOGAMICIN
     Indication: ACUTE LYMPHOCYTIC LEUKAEMIA
     Dosage: 1 MG, CYCLIC
     Dates: start: 20200425
  3. AMPHOTERICIN B. [Concomitant]
     Active Substance: AMPHOTERICIN B
     Indication: FUNGAL INFECTION
     Dosage: 4X 4 ML DAILY
     Route: 042
     Dates: start: 20200721, end: 20200804
  4. TAZOBAC [PIPERACILLIN SODIUM;TAZOBACTAM SODIUM] [Concomitant]
     Active Substance: PIPERACILLIN SODIUM\TAZOBACTAM SODIUM
     Indication: BACTERIAL INFECTION
     Dosage: 4 G, 3X/DAY
     Route: 042
     Dates: start: 20200804, end: 20200809
  5. VORICONAZOL [Concomitant]
     Active Substance: VORICONAZOLE
     Indication: FUNGAL INFECTION
     Dosage: 200 MG, 2X/DAY
     Route: 042
     Dates: start: 20200805, end: 20200816
  6. PRONTORAL [Concomitant]
     Indication: DENTAL DISORDER PROPHYLAXIS
     Dosage: UNK, 4X/DAY
     Route: 042
     Dates: start: 20200721, end: 20200804
  7. METRONIDAZOL [METRONIDAZOLE] [Concomitant]
     Active Substance: METRONIDAZOLE
     Indication: BACTERIAL INFECTION
     Dosage: 500 MG, 3X/DAY
     Route: 042
     Dates: start: 20200804, end: 20200810
  8. NOVALGIN (METAMIZOLE SODIUM) [Concomitant]
     Active Substance: METAMIZOLE SODIUM
     Indication: PAIN
     Dosage: 1 G, 2X/DAY
     Route: 042
     Dates: start: 20200804, end: 20200820
  9. METHOTREXATE SODIUM. [Concomitant]
     Active Substance: METHOTREXATE SODIUM
     Indication: ACUTE LYMPHOCYTIC LEUKAEMIA
     Dosage: 15 MG
     Route: 037
     Dates: start: 20200428
  10. CYCLOSPORINE A [Concomitant]
     Active Substance: CYCLOSPORINE
     Indication: PROPHYLAXIS AGAINST GRAFT VERSUS HOST DISEASE
     Dosage: 130 MG, 2X/DAY
     Route: 042
     Dates: start: 20200729, end: 20200804
  11. MOVICOL [Concomitant]
     Active Substance: POLYETHYLENE GLYCOL 3350\POTASSIUM CHLORIDE\SODIUM BICARBONATE\SODIUM CHLORIDE
     Dosage: 1 DF (1 PIECE)
     Route: 048
     Dates: start: 20200805, end: 20200813
  12. NOVALGIN (METAMIZOLE SODIUM) [Concomitant]
     Active Substance: METAMIZOLE SODIUM
     Indication: PAIN
     Dosage: 500 MG, AS NEEDED
     Route: 048
     Dates: start: 20200609, end: 20200804
  13. CYCLOSPORINE A [Concomitant]
     Active Substance: CYCLOSPORINE
     Dosage: 80 MG (IN CONSULTATION)
     Route: 042
     Dates: start: 20200805, end: 20200805
  14. PALLADON [Concomitant]
     Active Substance: HYDROMORPHONE
     Indication: PAIN
     Dosage: 10 MG (IN CONSULTATION 2 MG BOLUS)
     Route: 042
     Dates: start: 20200804
  15. MAGNESIUM [Concomitant]
     Active Substance: MAGNESIUM
     Indication: MAGNESIUM DEFICIENCY
     Dosage: 10ML OVER 24H
     Route: 042
     Dates: start: 20200801, end: 20200804
  16. KALIUM [POTASSIUM CHLORIDE] [Concomitant]
     Indication: HYPOKALAEMIA
     Dosage: 7.45 % (OVER 3H)
     Route: 042
     Dates: start: 20200804, end: 20200901

REACTIONS (1)
  - Renal failure [Not Recovered/Not Resolved]

NARRATIVE: CASE EVENT DATE: 20200804
